FAERS Safety Report 9758531 (Version 1)
Quarter: 2013Q4

REPORT INFORMATION
  Report Type: Spontaneous
  Country: US (occurrence: None)
  Receive Date: 20131216
  Receipt Date: 20131216
  Transmission Date: 20140711
  Serious: No
  Sender: FDA-Public Use
  Company Number: CABO-13002612

PATIENT
  Age: 43 Year
  Sex: Female
  Weight: 57 kg

DRUGS (1)
  1. COMETRIQ (CABOZANTINIB) CAPSULE [Suspect]
     Indication: LUNG CARCINOMA CELL TYPE UNSPECIFIED STAGE I
     Dosage: 140 MG, QD. ORAL?60 MG, QD, ORAL

REACTIONS (6)
  - Medication error [None]
  - Oropharyngeal pain [None]
  - Erythema [None]
  - Decreased appetite [None]
  - Asthenia [None]
  - Fatigue [None]
